FAERS Safety Report 26122391 (Version 1)
Quarter: 2025Q4

REPORT INFORMATION
  Report Type: Spontaneous
  Country: EU (occurrence: EU)
  Receive Date: 20251204
  Receipt Date: 20251204
  Transmission Date: 20260117
  Serious: Yes (Other)
  Sender: DUCHESNAY
  Company Number: EU-shionogi-202500011376

PATIENT

DRUGS (1)
  1. OSPHENA [Suspect]
     Active Substance: OSPEMIFENE
     Indication: Atrophic vulvovaginitis
     Dosage: 1 TABLET PER DAY

REACTIONS (1)
  - Endometrial cancer stage 0 [Unknown]
